FAERS Safety Report 10424320 (Version 2)
Quarter: 2014Q3

REPORT INFORMATION
  Report Type: Spontaneous
  Country: IT (occurrence: IT)
  Receive Date: 20140902
  Receipt Date: 20140902
  Transmission Date: 20150326
  Serious: Yes (Other)
  Sender: FDA-Public Use
  Company Number: IT-TEVA-500550ISR

PATIENT
  Age: 87 Year
  Sex: Female

DRUGS (5)
  1. ALTIAZEM - 60 MG COMPRESSE [Concomitant]
     Indication: PRODUCT USED FOR UNKNOWN INDICATION
     Route: 048
     Dates: start: 20130101, end: 20140609
  2. PANTOPRAZOLE SODIUM [Concomitant]
     Active Substance: PANTOPRAZOLE SODIUM
     Indication: PRODUCT USED FOR UNKNOWN INDICATION
     Route: 048
     Dates: start: 20130101, end: 20140609
  3. TRITTICO - 25 MG/ML GOCCE ORALI SOLUZIONE [Concomitant]
     Indication: PRODUCT USED FOR UNKNOWN INDICATION
     Dosage: ORAL DROPS, SOLUTION
     Route: 048
     Dates: start: 20130101, end: 20140609
  4. METFORMIN HYDROCHLORIDE. [Suspect]
     Active Substance: METFORMIN HYDROCHLORIDE
     Indication: DRUG ADMINISTRATION ERROR
     Dosage: 500 MG TOTAL
     Route: 048
     Dates: start: 20140609, end: 20140609
  5. DEPALGOS - 10 MG+ 325 MG COMPRESSE RIVESTITE CON FILM [Concomitant]
     Indication: PRODUCT USED FOR UNKNOWN INDICATION
     Dosage: PARACETAMOL 325MG AND OXYCODONE HYDROCHLORIDE 10 MG
     Route: 048
     Dates: start: 20130101, end: 20140609

REACTIONS (7)
  - Abdominal pain [Recovered/Resolved]
  - Nausea [Recovered/Resolved]
  - Drug administration error [Recovered/Resolved]
  - Blood pressure decreased [Recovered/Resolved]
  - Hyperhidrosis [Recovered/Resolved]
  - Hypoglycaemia [Recovered/Resolved]
  - Altered state of consciousness [Recovered/Resolved]

NARRATIVE: CASE EVENT DATE: 20140609
